FAERS Safety Report 8231132-8 (Version None)
Quarter: 2012Q1

REPORT INFORMATION
  Report Type: 
  Country: None (occurrence: None)
  Receive Date: 20120323
  Receipt Date: 20120314
  Transmission Date: 20120608
  Serious: Yes (Life-Threatening, Hospitalization, Disabling)
  Sender: FDA-Public Use
  Company Number: BE-JNJFOC-20120307882

PATIENT
  Sex: Female

DRUGS (14)
  1. FLECAINIDE ACETATE [Concomitant]
  2. BISOPROLOL FUMARATE [Concomitant]
  3. ABILIFY [Concomitant]
  4. ACETAMINOPHEN [Concomitant]
  5. ZESTRIL [Concomitant]
  6. XARELTO [Suspect]
     Indication: CEREBROVASCULAR ACCIDENT PROPHYLAXIS
     Route: 065
     Dates: start: 20111217, end: 20120127
  7. MIXTARD HUMAN 70/30 [Concomitant]
  8. SERTRALINE HYDROCHLORIDE [Concomitant]
  9. CALCIUM CARBONATE [Concomitant]
  10. E VITAMIN [Concomitant]
  11. ZANTAC [Concomitant]
  12. LIPITOR [Concomitant]
  13. FOLATE SODIUM [Concomitant]
  14. LEVOTHYROXINE SODIUM [Concomitant]

REACTIONS (4)
  - INTESTINAL ISCHAEMIA [None]
  - RENAL FAILURE [None]
  - RENAL INFARCT [None]
  - MESENTERIC VEIN THROMBOSIS [None]
